FAERS Safety Report 24168018 (Version 2)
Quarter: 2024Q3

REPORT INFORMATION
  Report Type: Spontaneous
  Country: US (occurrence: US)
  Receive Date: 20240802
  Receipt Date: 20240809
  Transmission Date: 20241016
  Serious: No
  Sender: SANOFI AVENTIS
  Company Number: US-SANOFI-02151478

PATIENT
  Age: 25 Year
  Sex: Male

DRUGS (1)
  1. LANTUS SOLOSTAR [Suspect]
     Active Substance: INSULIN GLARGINE
     Indication: Type 2 diabetes mellitus
     Dosage: 10-18 UNITS QD
     Dates: start: 2015

REACTIONS (3)
  - Blood glucose increased [Recovered/Resolved]
  - Device issue [Unknown]
  - Product storage error [Unknown]
